FAERS Safety Report 10979174 (Version 3)
Quarter: 2015Q2

REPORT INFORMATION
  Report Type: Spontaneous
  Country: IT (occurrence: IT)
  Receive Date: 20150402
  Receipt Date: 20150514
  Transmission Date: 20150821
  Serious: Yes (Hospitalization)
  Sender: FDA-Public Use
  Company Number: IT-NOVOPROD-443781

PATIENT
  Age: 90 Year
  Sex: Female
  Weight: 58 kg

DRUGS (8)
  1. ALLOPURINOLO [Concomitant]
     Active Substance: ALLOPURINOL
     Dosage: UNK
  2. LASIX [Concomitant]
     Active Substance: FUROSEMIDE
     Dosage: 1 U, QD
     Route: 065
  3. KLACID                             /00984601/ [Interacting]
     Active Substance: CLARITHROMYCIN
     Indication: INFLUENZA
     Dosage: UNK
     Route: 065
     Dates: start: 20140206, end: 20140206
  4. BLOPRESS [Concomitant]
     Active Substance: CANDESARTAN CILEXETIL
     Dosage: 1 U, QD
     Route: 065
  5. CARDICOR [Concomitant]
     Active Substance: BISOPROLOL
     Dosage: 2 U, QD
     Route: 065
  6. NOVONORM [Interacting]
     Active Substance: REPAGLINIDE
     Dosage: UNK
     Route: 048
  7. NOVONORM [Suspect]
     Active Substance: REPAGLINIDE
     Indication: PRODUCT USED FOR UNKNOWN INDICATION
     Dosage: 7 MG, QD
     Route: 048
     Dates: start: 20130101
  8. LANOXIN [Concomitant]
     Active Substance: DIGOXIN
     Dosage: 1 U, QD
     Route: 065

REACTIONS (3)
  - Hemiparesis [Recovered/Resolved]
  - Dysarthria [Recovered/Resolved]
  - Hypoglycaemia [Recovered/Resolved]

NARRATIVE: CASE EVENT DATE: 20140206
